FAERS Safety Report 10003894 (Version 2)
Quarter: 2014Q2

REPORT INFORMATION
  Report Type: Spontaneous
  Country: JP (occurrence: JP)
  Receive Date: 20140312
  Receipt Date: 20140402
  Transmission Date: 20141212
  Serious: Yes (Other)
  Sender: FDA-Public Use
  Company Number: JP-OTSUKA-JP-2014-12410

PATIENT
  Age: 69 Year
  Sex: Male

DRUGS (8)
  1. SAMSCA [Suspect]
     Indication: CARDIAC FAILURE CONGESTIVE
     Dosage: 7.5 MG MILLIGRAM(S), DAILY DOSE
     Route: 048
     Dates: start: 20140225, end: 20140302
  2. ARTIST [Suspect]
     Indication: PRODUCT USED FOR UNKNOWN INDICATION
     Dosage: 1.25 MG MILLIGRAM(S), DAILY DOSE
     Route: 048
     Dates: start: 20140225, end: 20140302
  3. ARTIST [Suspect]
     Dosage: UNK
     Route: 048
     Dates: start: 20140310
  4. LASIX [Concomitant]
     Dosage: 40 MG MILLIGRAM(S), DAILY DOSE
     Route: 041
     Dates: start: 20140225, end: 20140226
  5. LASIX [Concomitant]
     Dosage: 40 MG MILLIGRAM(S), DAILY DOSE
     Route: 048
     Dates: start: 20140227
  6. ALDACTONE A [Concomitant]
     Dosage: 25 MG MILLIGRAM(S), DAILY DOSE
     Route: 048
  7. AMLODIN [Concomitant]
     Dosage: 5 MG MILLIGRAM(S), DAILY DOSE
     Route: 048
  8. DIOVAN [Concomitant]
     Dosage: 80 MG MILLIGRAM(S), DAILY DOSE
     Route: 048

REACTIONS (1)
  - Ventricular tachycardia [Recovered/Resolved]
